FAERS Safety Report 10248870 (Version 1)
Quarter: 2014Q2

REPORT INFORMATION
  Report Type: Spontaneous
  Country: DE (occurrence: DE)
  Receive Date: 20140620
  Receipt Date: 20140620
  Transmission Date: 20141212
  Serious: Yes (Hospitalization)
  Sender: FDA-Public Use
  Company Number: DE-SUN PHARMACEUTICAL INDUSTRIES LTD-2014SUN01340

PATIENT
  Age: 37 Year
  Sex: Female

DRUGS (1)
  1. VENLAFAXINE HYDROCHLORIDE EXTENDED- RELEASE TABS 150MG [Suspect]
     Indication: MAJOR DEPRESSION
     Dosage: 100 DF (EQUIVALENT TO 15 G)
     Route: 048

REACTIONS (6)
  - Respiratory failure [Unknown]
  - Cardiovascular disorder [Unknown]
  - Suicidal ideation [Unknown]
  - Epilepsy [Unknown]
  - Toxicity to various agents [Unknown]
  - Intentional overdose [Unknown]
